FAERS Safety Report 17185741 (Version 2)
Quarter: 2023Q4

REPORT INFORMATION
  Report Type: Report from Study
  Country: DE (occurrence: DE)
  Receive Date: 20191220
  Receipt Date: 20231030
  Transmission Date: 20240109
  Serious: Yes (Death, Hospitalization, Other)
  Sender: FDA-Public Use
  Company Number: DE-002147023-PHNU2001DE02934

PATIENT
  Age: 73 Year
  Sex: Female
  Weight: 64 kg

DRUGS (37)
  1. OMEPRAZOLE [Suspect]
     Active Substance: OMEPRAZOLE
     Indication: Prophylaxis
     Dosage: UNK
     Route: 065
     Dates: start: 20010508, end: 20010508
  2. LOPERAMIDE [Suspect]
     Active Substance: LOPERAMIDE
     Indication: Diarrhoea
     Dosage: 1 DOSAGE FORM, QD
     Route: 048
     Dates: start: 20010430, end: 20010430
  3. OMEPRAZOLE [Suspect]
     Active Substance: OMEPRAZOLE
     Indication: Prophylaxis
     Dosage: 1 DOSAGE FORM, QD
     Route: 042
     Dates: start: 20010426, end: 20010505
  4. OMEPRAZOLE [Suspect]
     Active Substance: OMEPRAZOLE
     Indication: Peptic ulcer
     Dosage: UNK, QD
     Route: 042
     Dates: start: 20010508, end: 20010508
  5. PANTOZOL [Suspect]
     Active Substance: PANTOPRAZOLE SODIUM
     Indication: Prophylaxis
     Dosage: 20 MILLIGRAM, QD
     Route: 048
     Dates: start: 20010415, end: 20010426
  6. PANTOZOL [Suspect]
     Active Substance: PANTOPRAZOLE SODIUM
     Dosage: 20 MILLIGRAM, QD
     Route: 048
     Dates: start: 20010506
  7. CIPROFLOXACIN HYDROCHLORIDE [Suspect]
     Active Substance: CIPROFLOXACIN HYDROCHLORIDE
     Indication: Cholangitis
     Dosage: 500 MG, BID (1000 MG,QD)
     Route: 048
     Dates: start: 20010415, end: 20010426
  8. CIPROFLOXACIN HYDROCHLORIDE [Suspect]
     Active Substance: CIPROFLOXACIN HYDROCHLORIDE
     Indication: Cholangitis
     Dosage: 2 DOSAGE FORM, QD
     Route: 042
     Dates: start: 20010426, end: 20010501
  9. METRONIDAZOLE [Suspect]
     Active Substance: METRONIDAZOLE
     Indication: Cholangitis
     Dosage: 800 MILLIGRAM, QD
     Route: 042
     Dates: start: 20010426, end: 20010501
  10. METRONIDAZOLE [Suspect]
     Active Substance: METRONIDAZOLE
     Indication: Cholangitis
     Dosage: 400 MILLIGRAM, BID
     Route: 048
     Dates: start: 20010415, end: 20010426
  11. HEPARIN [Suspect]
     Active Substance: HEPARIN SODIUM
     Indication: Thrombosis prophylaxis
     Dosage: 7500 INTERNATIONAL UNIT, BID
     Route: 058
     Dates: start: 20010426, end: 20010512
  12. MEZLOCILLIN SODIUM [Suspect]
     Active Substance: MEZLOCILLIN SODIUM
     Indication: Cholangitis
     Dosage: 6 GRAM, QD(2 G,TID)
     Route: 042
     Dates: start: 20010428, end: 20010501
  13. PENTAZOCINE [Suspect]
     Active Substance: PENTAZOCINE
     Indication: Pain
     Dosage: 1 DOSAGE FORM, QD
     Route: 042
     Dates: start: 20010508, end: 20010508
  14. DIMENHYDRINATE [Suspect]
     Active Substance: DIMENHYDRINATE
     Indication: Nausea
     Dosage: 1 DOSAGE FORM
     Route: 042
     Dates: start: 20010508, end: 20010508
  15. DIMENHYDRINATE [Suspect]
     Active Substance: DIMENHYDRINATE
     Indication: Vomiting
  16. ETILEFRINE [Suspect]
     Active Substance: ETILEFRINE
     Indication: Hypotension
     Dosage: 30 DROP, QD, SINGLE
     Route: 048
     Dates: start: 20010508, end: 20010508
  17. MCP [Suspect]
     Active Substance: METOCLOPRAMIDE HYDROCHLORIDE
     Indication: Nausea
     Dosage: 20 DOSAGE FORM, QD
     Route: 048
     Dates: start: 20010508, end: 20010508
  18. MCP [Suspect]
     Active Substance: METOCLOPRAMIDE HYDROCHLORIDE
     Indication: Vomiting
  19. AMINO ACIDS\DEXTROSE\ELECTROLYTES NOS [Suspect]
     Active Substance: AMINO ACIDS\DEXTROSE\ELECTROLYTES NOS
     Indication: Parenteral nutrition
     Dosage: 500 MILLILITER, QD
     Route: 042
     Dates: start: 20010415, end: 20010427
  20. DIMETHINDENE [Suspect]
     Active Substance: DIMETHINDENE
     Indication: Pruritus
     Dosage: UNK
     Route: 042
     Dates: start: 20010511, end: 20010511
  21. DIMETHINDENE [Suspect]
     Active Substance: DIMETHINDENE
     Dosage: UNK
     Route: 042
     Dates: start: 20010511, end: 20010512
  22. DEXTROSE [Suspect]
     Active Substance: DEXTROSE\DEXTROSE MONOHYDRATE
     Indication: Parenteral nutrition
     Dosage: 500 MILLIGRAM, QD
     Route: 042
     Dates: start: 20010415, end: 20010505
  23. PANTOPRAZOLE SODIUM [Suspect]
     Active Substance: PANTOPRAZOLE SODIUM
     Indication: Product used for unknown indication
     Dosage: 20 MILLIGRAM, QD
     Route: 048
     Dates: start: 20010415, end: 20010426
  24. PANTOPRAZOLE SODIUM [Suspect]
     Active Substance: PANTOPRAZOLE SODIUM
     Dosage: 20 MILLIGRAM, QD
     Route: 048
     Dates: start: 20010506
  25. HYMECROMONE [Suspect]
     Active Substance: HYMECROMONE
     Indication: Cholelithiasis
     Dosage: 1 DOSAGE FORM, QD
     Route: 042
     Dates: start: 20010510
  26. DIMETHINDENE [Suspect]
     Active Substance: DIMETHINDENE
     Indication: Pruritus
     Dosage: 1 DOSAGE FORM, QD
     Route: 048
     Dates: start: 200104
  27. DIMETHINDENE [Suspect]
     Active Substance: DIMETHINDENE
     Dosage: 1 DOSAGE FORM, QD
     Route: 048
     Dates: start: 20010511, end: 20010511
  28. PREDNISOLONE SODIUM SUCCINATE [Suspect]
     Active Substance: PREDNISOLONE SODIUM SUCCINATE
     Indication: Pruritus
     Dosage: 100 MILLIGRAM, QD
     Route: 042
     Dates: start: 20010511, end: 20010511
  29. CARBIMAZOLE [Suspect]
     Active Substance: CARBIMAZOLE
     Indication: Hyperthyroidism
     Dosage: 5 MILLIGRAM, QD
     Route: 048
  30. ALDACTONE [Suspect]
     Active Substance: SPIRONOLACTONE
     Indication: Oedema
     Dosage: 100 MILLIGRAM, QD
     Route: 048
     Dates: start: 20010415, end: 20010425
  31. INSULIN NOS [Suspect]
     Active Substance: INSULIN NOS
     Indication: Parenteral nutrition
     Dosage: UNK
     Route: 042
     Dates: start: 20010415, end: 20010505
  32. INSULIN HUMAN [Suspect]
     Active Substance: INSULIN HUMAN
     Indication: Diabetes mellitus
     Dosage: 16IU-12IU-8IU
     Route: 058
     Dates: start: 20010415, end: 20010426
  33. MCP [Suspect]
     Active Substance: METOCLOPRAMIDE HYDROCHLORIDE
     Indication: Nausea
     Dosage: 1 DOSAGE FORM ONCE
     Route: 042
     Dates: start: 20010508, end: 20010508
  34. POTASSIUM CHLORIDE [Concomitant]
     Active Substance: POTASSIUM CHLORIDE
     Indication: Hypokalaemia
     Dosage: 1 DOSAGE FORM, QD
     Route: 048
     Dates: start: 20010506
  35. SODIUM CHLORIDE [Concomitant]
     Active Substance: SODIUM CHLORIDE
     Dosage: 100 ML, QD (100 ML, SINGLE)
     Route: 042
     Dates: start: 20010508, end: 20010508
  36. Jonosteril [Concomitant]
     Dosage: 250 MILLILITER, QD
     Route: 042
     Dates: start: 20010415, end: 20010505
  37. KALIUMKLORID [Concomitant]
     Indication: Hypokalaemia
     Dosage: UNK
     Route: 042
     Dates: start: 20010426, end: 20010501

REACTIONS (11)
  - Stevens-Johnson syndrome [Fatal]
  - Circulatory collapse [Fatal]
  - Cardiac arrest [Fatal]
  - Toxic epidermal necrolysis [Fatal]
  - Conjunctivitis [Unknown]
  - Blister [Unknown]
  - Skin lesion [Unknown]
  - Lip erosion [Unknown]
  - Skin exfoliation [Unknown]
  - Pruritus [Unknown]
  - Rash [Unknown]

NARRATIVE: CASE EVENT DATE: 20010511
